FAERS Safety Report 6667087-7 (Version None)
Quarter: 2010Q1

REPORT INFORMATION
  Report Type: 
  Country: None (occurrence: None)
  Receive Date: 20100331
  Receipt Date: 20100317
  Transmission Date: 20100710
  Serious: Yes (Hospitalization)
  Sender: FDA-Public Use
  Company Number: 008864

PATIENT
  Sex: Male

DRUGS (3)
  1. VIMPAT [Suspect]
     Dosage: (ORAL)
     Route: 048
  2. KEPPRA [Concomitant]
  3. EPANUTIN /00017402/ [Concomitant]

REACTIONS (1)
  - STEVENS-JOHNSON SYNDROME [None]
